FAERS Safety Report 23479907 (Version 2)
Quarter: 2025Q1

REPORT INFORMATION
  Report Type: Spontaneous
  Country: US (occurrence: US)
  Receive Date: 20240205
  Receipt Date: 20250227
  Transmission Date: 20250409
  Serious: No
  Sender: UCB
  Company Number: US-UCBSA-2023043835

PATIENT
  Age: 74 Year
  Sex: Male

DRUGS (6)
  1. LEVETIRACETAM [Suspect]
     Active Substance: LEVETIRACETAM
     Indication: Post-anoxic myoclonus
     Route: 042
  2. LEVETIRACETAM [Suspect]
     Active Substance: LEVETIRACETAM
     Indication: Off label use
     Dosage: 1 GRAM, 2X/DAY (BID)
  3. LEVETIRACETAM [Suspect]
     Active Substance: LEVETIRACETAM
  4. BACLOFEN [Concomitant]
     Active Substance: BACLOFEN
     Indication: Muscle relaxant therapy
  5. VALPROIC ACID [Concomitant]
     Active Substance: VALPROIC ACID
     Indication: Post-anoxic myoclonus
  6. PERAMPANEL [Concomitant]
     Active Substance: PERAMPANEL
     Indication: Post-anoxic myoclonus

REACTIONS (1)
  - No adverse event [Unknown]
